FAERS Safety Report 5910376-1 (Version None)
Quarter: 2008Q4

REPORT INFORMATION
  Report Type: 
  Country: None (occurrence: None)
  Receive Date: 20081007
  Receipt Date: 20080108
  Transmission Date: 20090506
  Serious: No
  Sender: FDA-Public Use
  Company Number: US-ASTRAZENECA-2008UW00580

PATIENT
  Age: 63 Year
  Sex: Female
  Weight: 99.8 kg

DRUGS (9)
  1. ARIMIDEX [Suspect]
     Route: 048
     Dates: start: 20080101
  2. BYETTA [Concomitant]
     Indication: DIABETES MELLITUS
  3. METFORMIN HCL [Concomitant]
  4. OMEPRAZOLE [Concomitant]
  5. BENECAR [Concomitant]
  6. LIPITOR [Concomitant]
  7. FLUOXETINE [Concomitant]
  8. ALBUTEROL [Concomitant]
  9. FLOVENT [Concomitant]

REACTIONS (2)
  - ABDOMINAL PAIN UPPER [None]
  - NAUSEA [None]
